FAERS Safety Report 4954665-6 (Version None)
Quarter: 2006Q1

REPORT INFORMATION
  Report Type: 
  Country: None (occurrence: None)
  Receive Date: 20060327
  Receipt Date: 20050905
  Transmission Date: 20060701
  Serious: Yes (Life-Threatening, Hospitalization, Other)
  Sender: FDA-Public Use
  Company Number: HQWYE273207SEP05

PATIENT
  Sex: Female

DRUGS (11)
  1. ENBREL [Suspect]
     Indication: RHEUMATOID ARTHRITIS
     Route: 058
     Dates: start: 20050509, end: 20050830
  2. RHEUMATREX [Suspect]
     Route: 048
  3. PREDONINE [Concomitant]
     Dosage: 5 MG/DAY, TAB
  4. SULFASALAZINE [Concomitant]
     Dates: end: 20050701
  5. FAMOTIDINE [Concomitant]
  6. ETODOLAC [Concomitant]
  7. VOLTAREN [Concomitant]
  8. FOLIAMIN [Concomitant]
  9. ASPARTATE CALCIUM [Concomitant]
  10. EVISTA [Concomitant]
  11. LIPITOR [Concomitant]

REACTIONS (3)
  - DISSEMINATED INTRAVASCULAR COAGULATION [None]
  - HEPATIC FUNCTION ABNORMAL [None]
  - SEPSIS [None]
